FAERS Safety Report 23932946 (Version 1)
Quarter: 2024Q2

REPORT INFORMATION
  Report Type: Spontaneous
  Country: BG (occurrence: BG)
  Receive Date: 20240603
  Receipt Date: 20240603
  Transmission Date: 20240716
  Serious: Yes (Other)
  Sender: FDA-Public Use
  Company Number: BG-AMGEN-BGRSP2024104673

PATIENT
  Age: 59 Year
  Sex: Male

DRUGS (11)
  1. REPATHA [Suspect]
     Active Substance: EVOLOCUMAB
     Indication: Product used for unknown indication
     Route: 065
  2. ASPIRIN [Concomitant]
     Active Substance: ASPIRIN
     Dosage: 100 MILLIGRAM
  3. PRASUGREL [Concomitant]
     Active Substance: PRASUGREL
     Dosage: 10 MILLIGRAM
  4. ROSUVASTATIN [Concomitant]
     Active Substance: ROSUVASTATIN
     Dosage: 40 MILLIGRAM
  5. SPIRONOLACTONE [Concomitant]
     Active Substance: SPIRONOLACTONE
     Dosage: 50 MILLIGRAM
  6. EMPAGLIFLOZIN [Concomitant]
     Active Substance: EMPAGLIFLOZIN
     Dosage: 10 MILLIGRAM
  7. METFORMIN [Concomitant]
     Active Substance: METFORMIN HYDROCHLORIDE
  8. INSULIN NOS [Concomitant]
     Active Substance: INSULIN NOS
  9. LEVOTHYROXINE SODIUM [Concomitant]
     Active Substance: LEVOTHYROXINE SODIUM
     Indication: Hypothyroidism
     Dosage: 150 MILLIGRAM
  10. EZETIMIBE [Concomitant]
     Active Substance: EZETIMIBE
  11. VALSARTAN [Concomitant]
     Active Substance: VALSARTAN
     Dosage: 2X5T

REACTIONS (2)
  - Vascular stent stenosis [Unknown]
  - Intermittent claudication [Recovered/Resolved]
